FAERS Safety Report 22311145 (Version 1)
Quarter: 2023Q2

REPORT INFORMATION
  Report Type: Spontaneous
  Country: US (occurrence: US)
  Receive Date: 20230511
  Receipt Date: 20230511
  Transmission Date: 20230721
  Serious: Yes (Hospitalization)
  Sender: FDA-Public Use
  Company Number: US-Cardinal Health 414-NPHS-AE-23-2

PATIENT
  Age: 67 Year
  Sex: Male
  Weight: 82.6 kg

DRUGS (2)
  1. KIT FOR THE PREPARATION OF TECHNETIUM TC99M SESTAMIBI [Suspect]
     Active Substance: TECHNETIUM TC-99M SESTAMIBI
     Indication: Scan myocardial perfusion
     Dosage: CARDIAC REST DOSE-10.6 MCI
     Route: 042
     Dates: start: 20230214, end: 20230214
  2. KIT FOR THE PREPARATION OF TECHNETIUM TC99M SESTAMIBI [Suspect]
     Active Substance: TECHNETIUM TC-99M SESTAMIBI
     Indication: Scan myocardial perfusion
     Dosage: CARDIAC STRESS DOSE-30.1 MCI
     Route: 042
     Dates: start: 20230214, end: 20230214

REACTIONS (7)
  - Anaphylactic reaction [Recovered/Resolved]
  - Hypersensitivity [Recovered/Resolved]
  - Hypotension [Recovered/Resolved]
  - Electrocardiogram ST segment elevation [Recovered/Resolved]
  - Rash [Recovered/Resolved]
  - Angioedema [Recovered/Resolved]
  - Dizziness [Recovered/Resolved]

NARRATIVE: CASE EVENT DATE: 20230214
